FAERS Safety Report 6675778-7 (Version None)
Quarter: 2010Q2

REPORT INFORMATION
  Report Type: 
  Country: None (occurrence: None)
  Receive Date: 20100411
  Receipt Date: 20100330
  Transmission Date: 20101027
  Serious: Yes (Death, Hospitalization, Other)
  Sender: FDA-Public Use
  Company Number: JP-BRISTOL-MYERS SQUIBB COMPANY-15045339

PATIENT
  Age: 65 Year
  Sex: Male

DRUGS (3)
  1. PARAPLATIN [Suspect]
     Indication: SMALL CELL LUNG CANCER STAGE UNSPECIFIED
     Route: 041
  2. LASTET [Suspect]
     Indication: SMALL CELL LUNG CANCER STAGE UNSPECIFIED
  3. OXYCODONE HCL [Concomitant]
     Indication: CANCER PAIN
     Dosage: OXYCODONE HCL HYDRATE

REACTIONS (3)
  - ABSCESS [None]
  - DIVERTICULAR PERFORATION [None]
  - MALIGNANT NEOPLASM PROGRESSION [None]
